FAERS Safety Report 8003073-2 (Version None)
Quarter: 2011Q4

REPORT INFORMATION
  Report Type: 
  Country: None (occurrence: None)
  Receive Date: 20111219
  Receipt Date: 20111202
  Transmission Date: 20120403
  Serious: Yes (Other)
  Sender: FDA-Public Use
  Company Number: 2011AP002942

PATIENT
  Age: 65 Year
  Sex: Female

DRUGS (10)
  1. PANTOPRAZOLE [Concomitant]
  2. MELOXICAM [Concomitant]
  3. CETIRIZINE HYDROCHLORIDE [Concomitant]
  4. ROSUVASTATIN CALCIUM (ROSUVASTATIN) [Concomitant]
  5. ASPIRIN [Concomitant]
  6. LAMOTRIGINE [Suspect]
     Indication: CONVULSION
     Dosage: 2 TAB; TAB; PO;BID
     Route: 048
     Dates: start: 20111116, end: 20111201
  7. AMILORIDE (AMILORIDE) [Concomitant]
  8. TELMISARTAN [Concomitant]
  9. ZOPICLONE (ZOPICLONE) [Concomitant]
  10. SERTRALINE HYDROCHLORIDE [Concomitant]

REACTIONS (5)
  - FALL [None]
  - COGNITIVE DISORDER [None]
  - GAIT DISTURBANCE [None]
  - MEMORY IMPAIRMENT [None]
  - CONFUSIONAL STATE [None]
